FAERS Safety Report 15080104 (Version 1)
Quarter: 2018Q2

REPORT INFORMATION
  Report Type: Spontaneous
  Country: US (occurrence: US)
  Receive Date: 20180627
  Receipt Date: 20180627
  Transmission Date: 20180711
  Serious: Yes (Other)
  Sender: FDA-Public Use
  Company Number: PHEH2018US024979

PATIENT
  Sex: Female

DRUGS (2)
  1. NOVOCAIN [Suspect]
     Active Substance: PROCAINE HYDROCHLORIDE
     Indication: PRODUCT USED FOR UNKNOWN INDICATION
     Route: 065
  2. COSENTYX [Suspect]
     Active Substance: SECUKINUMAB
     Indication: PRODUCT USED FOR UNKNOWN INDICATION
     Dosage: 150 MG, QMO
     Route: 065
     Dates: start: 201704

REACTIONS (9)
  - Ocular hyperaemia [Unknown]
  - Rosacea [Unknown]
  - Heart rate increased [Unknown]
  - Pruritus [Unknown]
  - Fatigue [Unknown]
  - Loss of consciousness [Unknown]
  - Dyspnoea [Unknown]
  - Erythema [Not Recovered/Not Resolved]
  - Arthralgia [Not Recovered/Not Resolved]
